FAERS Safety Report 20918804 (Version 1)
Quarter: 2022Q2

REPORT INFORMATION
  Report Type: Other
  Country: US (occurrence: None)
  Receive Date: 20220606
  Receipt Date: 20220606
  Transmission Date: 20220721
  Serious: Yes (Hospitalization, Other)
  Sender: FDA-Public Use
  Company Number: US-ROCHE-3107983

PATIENT
  Sex: Female
  Weight: 2.58 kg

DRUGS (5)
  1. TOCILIZUMAB [Suspect]
     Active Substance: TOCILIZUMAB
     Indication: Product used for unknown indication
     Route: 064
  2. CEFTRIAXONE [Suspect]
     Active Substance: CEFTRIAXONE
     Indication: Product used for unknown indication
     Route: 064
  3. REMDESIVIR [Suspect]
     Active Substance: REMDESIVIR
     Indication: Product used for unknown indication
     Route: 064
  4. HYDROXYCHLOROQUINE [Suspect]
     Active Substance: HYDROXYCHLOROQUINE
     Indication: Product used for unknown indication
     Route: 064
  5. AZITHROMYCIN [Suspect]
     Active Substance: AZITHROMYCIN
     Indication: Product used for unknown indication
     Route: 064

REACTIONS (16)
  - Foetal growth restriction [Unknown]
  - Brain oedema [Unknown]
  - Intraventricular haemorrhage [Unknown]
  - Cerebral atrophy [Unknown]
  - Hypoglycaemia neonatal [Unknown]
  - Foetal distress syndrome [Unknown]
  - Low birth weight baby [Recovering/Resolving]
  - Transient tachypnoea of the newborn [Unknown]
  - Hyperbilirubinaemia neonatal [Unknown]
  - Hypophagia [Unknown]
  - COVID-19 [Unknown]
  - Developmental delay [Unknown]
  - Cerebral ventricle dilatation [Unknown]
  - Hypertonia [Unknown]
  - Tremor [Unknown]
  - Foetal exposure during pregnancy [Unknown]
